FAERS Safety Report 12824334 (Version 1)
Quarter: 2016Q4

REPORT INFORMATION
  Report Type: Spontaneous
  Country: US (occurrence: US)
  Receive Date: 20161007
  Receipt Date: 20161007
  Transmission Date: 20170207
  Serious: Yes (Hospitalization, Other)
  Sender: FDA-Public Use
  Company Number: US-INDIVIOR-INDV-085188-2015

PATIENT
  Age: 0 Year
  Sex: Female
  Weight: 3.18 kg

DRUGS (7)
  1. BUPRENORPHINE GENERIC TAB [Suspect]
     Active Substance: BUPRENORPHINE
     Dosage: 24 MG, DAILY, ABOUT 2 WEEKS
     Route: 063
     Dates: start: 20150804, end: 201508
  2. NICOTINE. [Suspect]
     Active Substance: NICOTINE
     Indication: NICOTINE DEPENDENCE
     Dosage: 1 UNIT, UNK
     Route: 064
     Dates: start: 201411, end: 20150804
  3. BUPRENORPHINE GENERIC TAB [Suspect]
     Active Substance: BUPRENORPHINE
     Dosage: 24 MG, DAILY, ABOUT 2 MONTHS
     Route: 064
     Dates: start: 201506, end: 20150804
  4. BUPRENORPHINE GENERIC TAB [Suspect]
     Active Substance: BUPRENORPHINE
     Indication: DRUG DEPENDENCE
     Dosage: 16 MG DAILY
     Route: 064
     Dates: start: 201412
  5. NICOTINE. [Suspect]
     Active Substance: NICOTINE
     Dosage: 1 UNIT, UNK
     Route: 063
     Dates: start: 20150804, end: 201508
  6. BUPRENORPHINE GENERIC TAB [Suspect]
     Active Substance: BUPRENORPHINE
     Dosage: UNK, INCREASED DOSES FROM 16 MG TO 24 MG, ABOUT 6 MONTHS
     Route: 064
     Dates: end: 201506
  7. SUBOXONE [Suspect]
     Active Substance: BUPRENORPHINE HYDROCHLORIDE\NALOXONE HYDROCHLORIDE
     Indication: DRUG DEPENDENCE
     Dosage: UNK, DAILY
     Route: 064

REACTIONS (3)
  - Foetal exposure during pregnancy [Recovered/Resolved]
  - Exposure during breast feeding [Recovered/Resolved]
  - Drug withdrawal syndrome neonatal [Recovered/Resolved]

NARRATIVE: CASE EVENT DATE: 2014
